FAERS Safety Report 5565618-1 (Version None)
Quarter: 2007Q4

REPORT INFORMATION
  Report Type: 
  Country: None (occurrence: None)
  Receive Date: 20071218
  Receipt Date: 20071128
  Transmission Date: 20080405
  Serious: No
  Sender: FDA-Public Use
  Company Number: US-BOEHRINGER INGELHEIM PHARMACEUTICALS, INC.-2007-BP-25315BP

PATIENT
  Sex: Female

DRUGS (4)
  1. FLOMAX [Suspect]
     Indication: URINARY RETENTION
     Route: 048
     Dates: start: 20070801, end: 20071101
  2. SPIRIVA [Suspect]
  3. ALBUTEROL [Concomitant]
  4. WELLBUTRIN [Concomitant]

REACTIONS (3)
  - DYSPNOEA [None]
  - INSOMNIA [None]
  - NOCTURNAL DYSPNOEA [None]
